FAERS Safety Report 19461149 (Version 1)
Quarter: 2021Q2

REPORT INFORMATION
  Report Type: Report from Study
  Country: US (occurrence: US)
  Receive Date: 20210625
  Receipt Date: 20210625
  Transmission Date: 20210717
  Serious: Yes (Other)
  Sender: FDA-Public Use
  Company Number: US-AMGEN-USASL2021087334

PATIENT
  Age: 56 Year
  Sex: Female
  Weight: 103 kg

DRUGS (15)
  1. OTEZLA [Suspect]
     Active Substance: APREMILAST
     Indication: PSORIATIC ARTHROPATHY
     Dosage: UNK UNK, BID
     Route: 048
     Dates: end: 201906
  2. KETOCONAZOL [Concomitant]
     Active Substance: KETOCONAZOLE
     Indication: SKIN DISORDER
     Dosage: UNK
     Dates: start: 20181009
  3. ALPRAZOLAM. [Concomitant]
     Active Substance: ALPRAZOLAM
     Dosage: 0.5 MILLIGRAM, QD
     Route: 048
  4. HYDROCODONE [Concomitant]
     Active Substance: HYDROCODONE
     Dosage: UNK
  5. PERIDONTONE [Concomitant]
     Dosage: UNK
  6. ENBREL [Suspect]
     Active Substance: ETANERCEPT
     Indication: PRODUCT USED FOR UNKNOWN INDICATION
     Dosage: UNK
     Route: 065
     Dates: start: 202001, end: 202009
  7. SHINGRIX [Concomitant]
     Active Substance: RECOMBINANT VARICELLA ZOSTER VIRUS (VZV) GLYCOPROTEIN E
     Dosage: UNK
     Dates: start: 2020
  8. MODERNA COVID?19 VACCINE [Concomitant]
     Active Substance: CX-024414
     Dosage: UNK
     Dates: start: 2021
  9. KETOCONAZOLE. [Concomitant]
     Active Substance: KETOCONAZOLE
     Dosage: 2 PERCENT
  10. MELOXICAM. [Concomitant]
     Active Substance: MELOXICAM
     Dosage: 15 MILLIGRAM, QD
     Route: 048
  11. EPINEPHRINE. [Concomitant]
     Active Substance: EPINEPHRINE
     Dosage: 0.3 MILLIGRAM
  12. TORSEMIDE. [Concomitant]
     Active Substance: TORSEMIDE
     Indication: SWELLING
     Dosage: 10 MILLIGRAM
     Route: 048
  13. TRIAMCINOLONE [Concomitant]
     Active Substance: TRIAMCINOLONE
     Dosage: UNK UNK, BID (0.1 PERCENT)
     Route: 061
     Dates: start: 20181009
  14. OMEPRAZOLE;SODIUM BICARBONATE [Concomitant]
     Active Substance: OMEPRAZOLE\SODIUM BICARBONATE
     Indication: DYSPEPSIA
     Dosage: UNK 20?1.1 MG?GRAM
  15. ASPIRIN [ACETYLSALICYLIC ACID] [Concomitant]
     Active Substance: ASPIRIN
     Indication: OSTEOARTHRITIS
     Dosage: UNK UNK, QD (1 TABLET)
     Route: 048

REACTIONS (16)
  - Immunology test abnormal [Unknown]
  - Hypobarism [Unknown]
  - Hypoaesthesia [Unknown]
  - Heart rate abnormal [Unknown]
  - Spondylolisthesis [Unknown]
  - Bile duct stenosis [Unknown]
  - Lumbar spinal stenosis [Unknown]
  - Perirectal abscess [Unknown]
  - Bursitis [Unknown]
  - Nephrolithiasis [Recovering/Resolving]
  - Therapy partial responder [Not Recovered/Not Resolved]
  - Fibromyalgia [Unknown]
  - Facet joint syndrome [Unknown]
  - Psoriasis [Unknown]
  - Abscess [Unknown]
  - Intervertebral disc degeneration [Unknown]

NARRATIVE: CASE EVENT DATE: 20191202
